FAERS Safety Report 24155003 (Version 2)
Quarter: 2025Q1

REPORT INFORMATION
  Report Type: Spontaneous
  Country: US (occurrence: US)
  Receive Date: 20240731
  Receipt Date: 20250108
  Transmission Date: 20250408
  Serious: Yes (Other)
  Sender: Kilitch Healthcare
  Company Number: US-KHC-000056

PATIENT
  Age: 63 Year
  Sex: Female

DRUGS (2)
  1. DRY EYE RELIEF (CARBOXYMETHYLCELLULOSE SODIUM) [Suspect]
     Active Substance: CARBOXYMETHYLCELLULOSE SODIUM
     Indication: Dry eye
     Dosage: 1-2 DROPS AS PER NEEDED
     Dates: start: 20230713, end: 20230717
  2. ARMOUR THYROID [Concomitant]
     Active Substance: THYROID, PORCINE
     Indication: Thyroid disorder
     Dosage: 100 MCG IN AM,?45 MCG MIDDAY
     Route: 048

REACTIONS (3)
  - Hordeolum [Recovering/Resolving]
  - Recalled product administered [Unknown]
  - Periorbital cellulitis [Recovering/Resolving]

NARRATIVE: CASE EVENT DATE: 20230718
